FAERS Safety Report 6093332-5 (Version None)
Quarter: 2009Q1

REPORT INFORMATION
  Report Type: 
  Country: None (occurrence: None)
  Receive Date: 20090226
  Receipt Date: 20090219
  Transmission Date: 20090719
  Serious: Yes (Death)
  Sender: FDA-Public Use
  Company Number: TW-CELGENEUS-153-20785-09021253

PATIENT
  Age: 31 Year
  Sex: Female

DRUGS (7)
  1. THALOMID [Suspect]
     Indication: T-CELL LYMPHOMA
     Dosage: 50-100MG
     Route: 048
  2. DOXORUBICIN HCL [Suspect]
     Indication: T-CELL LYMPHOMA
     Route: 065
     Dates: start: 20051201
  3. ACITRETIN [Concomitant]
     Indication: T-CELL LYMPHOMA
     Route: 065
  4. INTERFERON ALFA [Concomitant]
     Indication: T-CELL LYMPHOMA
     Dosage: 3 MU
     Route: 065
  5. CYCLOPHOSPHAMIDE [Concomitant]
     Indication: T-CELL LYMPHOMA
     Route: 065
     Dates: start: 20051101
  6. VINCRISTINE [Concomitant]
     Indication: T-CELL LYMPHOMA
     Route: 065
     Dates: start: 20051101
  7. PREDNISOLONE [Concomitant]
     Indication: T-CELL LYMPHOMA
     Route: 065
     Dates: start: 20051101

REACTIONS (2)
  - CARDIOGENIC SHOCK [None]
  - CARDIOMYOPATHY [None]
